FAERS Safety Report 24671719 (Version 1)
Quarter: 2024Q4

REPORT INFORMATION
  Report Type: Spontaneous
  Country: ES (occurrence: ES)
  Receive Date: 20241127
  Receipt Date: 20241127
  Transmission Date: 20250115
  Serious: Yes (Hospitalization)
  Sender: SAMSUNG BIOEPIS
  Company Number: None

PATIENT
  Age: 42 Year
  Sex: Female

DRUGS (2)
  1. INFLIXIMAB [Suspect]
     Active Substance: INFLIXIMAB
     Indication: Crohn^s disease
     Route: 042
     Dates: start: 20240522, end: 20240605
  2. AZATHIOPRINE [Concomitant]
     Active Substance: AZATHIOPRINE
     Indication: Crohn^s disease
     Dosage: IMUREL 50 MG FILM-COATED TABLETS, 50 TABLETS;
     Route: 048
     Dates: start: 20240521

REACTIONS (2)
  - Eosinophilic pleural effusion [Recovered/Resolved]
  - Serositis [Recovered/Resolved]

NARRATIVE: CASE EVENT DATE: 20240619
